FAERS Safety Report 15555181 (Version 1)
Quarter: 2018Q4

REPORT INFORMATION
  Report Type: Spontaneous
  Country: US (occurrence: US)
  Receive Date: 20181022
  Receipt Date: 20181022
  Transmission Date: 20190205
  Serious: No
  Sender: FDA-Public Use
  Company Number: None

PATIENT
  Age: 95 Year
  Sex: Female

DRUGS (2)
  1. SAMSCA [Suspect]
     Active Substance: TOLVAPTAN
     Indication: HYPOOSMOLAR STATE
     Route: 048
     Dates: start: 20150210
  2. SAMSCA [Suspect]
     Active Substance: TOLVAPTAN
     Indication: HYPONATRAEMIA
     Route: 048
     Dates: start: 20150210

REACTIONS (1)
  - Off label use [None]

NARRATIVE: CASE EVENT DATE: 20180103
